FAERS Safety Report 11168621 (Version 1)
Quarter: 2015Q2

REPORT INFORMATION
  Report Type: Report from Study
  Country: US (occurrence: US)
  Receive Date: 20150605
  Receipt Date: 20150605
  Transmission Date: 20150821
  Serious: Yes (Other)
  Sender: FDA-Public Use
  Company Number: US-009507513-1506USA000834

PATIENT
  Age: 69 Year

DRUGS (5)
  1. DECADRON [Suspect]
     Active Substance: DEXAMETHASONE
     Indication: PLASMA CELL MYELOMA
     Dosage: FREQUENCY: Q WEEK
     Route: 048
     Dates: start: 20130520, end: 20130925
  2. DECADRON [Suspect]
     Active Substance: DEXAMETHASONE
     Dosage: FREQUENCY: Q WEEK
     Route: 048
     Dates: start: 20131031, end: 20140501
  3. VELCADE [Suspect]
     Active Substance: BORTEZOMIB
     Indication: PLASMA CELL MYELOMA
     Dosage: UNK, FREQUENCY: 2X WEEKLY
     Route: 042
     Dates: start: 20130520, end: 20130925
  4. CYTOXAN [Suspect]
     Active Substance: CYCLOPHOSPHAMIDE
     Indication: PLASMA CELL MYELOMA
     Dosage: UNK, FREQUENCY: DAYS 1-21
     Route: 048
     Dates: start: 20130520, end: 20130925
  5. CARFILZOMIB [Suspect]
     Active Substance: CARFILZOMIB
     Indication: PLASMA CELL MYELOMA
     Dosage: UNK, FREQUENCY: 1,2,8,9,15,16
     Route: 048
     Dates: start: 20131031, end: 20140501

REACTIONS (1)
  - Diarrhoea [Unknown]

NARRATIVE: CASE EVENT DATE: 20130927
